FAERS Safety Report 24141929 (Version 1)
Quarter: 2024Q3

REPORT INFORMATION
  Report Type: Spontaneous
  Country: ES (occurrence: ES)
  Receive Date: 20240726
  Receipt Date: 20240726
  Transmission Date: 20241017
  Serious: Yes (Life-Threatening)
  Sender: ASTELLAS
  Company Number: ES-ASTELLAS-2024US020873

PATIENT
  Age: 16 Year
  Sex: Female
  Weight: 52 kg

DRUGS (3)
  1. ISAVUCONAZOLE [Suspect]
     Active Substance: ISAVUCONAZOLE
     Indication: Fungal infection
     Dosage: 10 MG/KG/8 H (FOR THE FIRST 48 H) , EVERY 8 HOURS
     Route: 042
  2. ISAVUCONAZOLE [Suspect]
     Active Substance: ISAVUCONAZOLE
     Dosage: 10 MG/KG, ONCE DAILY (EVERY 24 H)
     Route: 042
  3. ISAVUCONAZOLE [Suspect]
     Active Substance: ISAVUCONAZOLE
     Indication: Fungal infection
     Dosage: UNK UNK, UNKNOWN FREQ.
     Route: 048

REACTIONS (5)
  - Alanine aminotransferase increased [Unknown]
  - Aspartate aminotransferase increased [Unknown]
  - Blood creatinine increased [Unknown]
  - Product administered to patient of inappropriate age [Unknown]
  - Off label use [Unknown]
